FAERS Safety Report 24810381 (Version 1)
Quarter: 2025Q1

REPORT INFORMATION
  Report Type: Spontaneous
  Country: US (occurrence: US)
  Receive Date: 20250106
  Receipt Date: 20250106
  Transmission Date: 20250409
  Serious: Yes (Hospitalization)
  Sender: MYLAN
  Company Number: US-MYLANLABS-2024M1117447

PATIENT
  Age: 6 Decade

DRUGS (8)
  1. FENTANYL [Suspect]
     Active Substance: FENTANYL
     Indication: Back pain
     Route: 037
     Dates: start: 201605
  2. FENTANYL [Suspect]
     Active Substance: FENTANYL
     Dosage: 19 MICROGRAM, QD, INTRATHECAL CATHETER INFUSION
     Route: 037
     Dates: end: 202106
  3. BUPIVACAINE [Suspect]
     Active Substance: BUPIVACAINE
     Indication: Back pain
     Route: 037
  4. BUPIVACAINE [Suspect]
     Active Substance: BUPIVACAINE
     Dosage: 12.6 MILLIGRAM, QD, BASAL INFUSION; INTRATHECAL CATHETER INFUSION
     Route: 037
  5. BUPIVACAINE [Suspect]
     Active Substance: BUPIVACAINE
     Route: 037
     Dates: start: 201605
  6. HYDROMORPHONE [Suspect]
     Active Substance: HYDROMORPHONE
     Indication: Back pain
     Route: 037
  7. HYDROMORPHONE [Suspect]
     Active Substance: HYDROMORPHONE
     Dosage: 380 MICROGRAM, QD (BASAL INFUSION; INTRATHECAL CATHETER INFUSION)
     Route: 037
  8. SALINE [Concomitant]
     Active Substance: SODIUM CHLORIDE
     Indication: Back pain
     Route: 065

REACTIONS (1)
  - Granuloma [Unknown]
